FAERS Safety Report 9379441 (Version 3)
Quarter: 2014Q1

REPORT INFORMATION
  Report Type: Spontaneous
  Country: US (occurrence: US)
  Receive Date: 20130702
  Receipt Date: 20140326
  Transmission Date: 20141002
  Serious: Yes (Other)
  Sender: FDA-Public Use
  Company Number: US-PFIZER INC-2013191750

PATIENT
  Age: 56 Year
  Sex: Female
  Weight: 61 kg

DRUGS (8)
  1. XELJANZ [Suspect]
     Indication: RHEUMATOID ARTHRITIS
     Dosage: 5 MG, 2X/DAY
     Route: 048
     Dates: start: 20130505, end: 20130715
  2. XELJANZ [Suspect]
     Dosage: 5 MG, 2X/DAY
     Route: 048
     Dates: start: 20130808
  3. LIPITOR [Concomitant]
     Dosage: 40 MG
  4. TRAMADOL [Concomitant]
     Dosage: 50 MG
  5. NABUMETONE [Concomitant]
     Dosage: 500 MG
  6. ASPIR-LOW [Concomitant]
     Dosage: 81 MG
  7. FOLIC ACID [Concomitant]
     Dosage: 1 MG
  8. LEFLUNOMIDE [Concomitant]
     Dosage: 20 MG

REACTIONS (3)
  - Ear infection staphylococcal [Unknown]
  - Ear infection [Unknown]
  - Headache [Recovered/Resolved]
